FAERS Safety Report 9848074 (Version 1)
Quarter: 2013Q4

REPORT INFORMATION
  Report Type: Spontaneous
  Country: US (occurrence: None)
  Receive Date: 20131223
  Receipt Date: 20131223
  Transmission Date: 20140711
  Serious: No
  Sender: FDA-Public Use
  Company Number: CABO-13003593

PATIENT
  Age: 69 Year
  Sex: Male
  Weight: 62.5 kg

DRUGS (3)
  1. COMETRIQ [Suspect]
     Indication: THYROID CANCER
     Route: 048
     Dates: start: 20131023
  2. LEVOTHYROXINE (LEVOTHYROXINE SODIUM) [Concomitant]
  3. HYDROCHLOROTHIAZIDE (HYDROCHLOROTHIAZIDE) [Concomitant]

REACTIONS (6)
  - Nasopharyngitis [None]
  - Gastrooesophageal reflux disease [None]
  - Dysphonia [None]
  - Blood pressure increased [None]
  - Throat irritation [None]
  - Dysphagia [None]
